FAERS Safety Report 4524939-1 (Version None)
Quarter: 2004Q4

REPORT INFORMATION
  Report Type: 
  Country: None (occurrence: None)
  Receive Date: 20041208
  Receipt Date: 20041124
  Transmission Date: 20050328
  Serious: Yes (Hospitalization)
  Sender: FDA-Public Use
  Company Number: 201278

PATIENT
  Age: 67 Year
  Sex: Female
  Weight: 131.5431 kg

DRUGS (2)
  1. AVONEX [Suspect]
     Indication: MULTIPLE SCLEROSIS
     Dosage: 30 UG QW IM
     Route: 030
  2. MEDICATION (NOS) [Concomitant]

REACTIONS (4)
  - ANKLE FRACTURE [None]
  - DEPRESSION [None]
  - FALL [None]
  - TRANSIENT ISCHAEMIC ATTACK [None]
